FAERS Safety Report 8110501-0 (Version None)
Quarter: 2012Q1

REPORT INFORMATION
  Report Type: 
  Country: None (occurrence: None)
  Receive Date: 20120202
  Receipt Date: 20120124
  Transmission Date: 20120608
  Serious: Yes (Hospitalization, Other)
  Sender: FDA-Public Use
  Company Number: US-ASTRAZENECA-2011SE77425

PATIENT
  Age: 55 Year
  Sex: Male
  Weight: 99.8 kg

DRUGS (4)
  1. SEROQUEL XR [Suspect]
     Route: 048
  2. VIIPRYD [Concomitant]
     Indication: ANTIDEPRESSANT THERAPY
  3. XANAX [Concomitant]
     Indication: ANTIDEPRESSANT THERAPY
     Dosage: 3-4MG QD
  4. SEROQUEL XR [Suspect]
     Indication: DEPRESSION
     Route: 048
     Dates: start: 20100701

REACTIONS (3)
  - BRAIN NEOPLASM [None]
  - MALAISE [None]
  - DEPRESSION [None]
